FAERS Safety Report 22882266 (Version 3)
Quarter: 2023Q4

REPORT INFORMATION
  Report Type: Spontaneous
  Country: GB (occurrence: GB)
  Receive Date: 20230830
  Receipt Date: 20231103
  Transmission Date: 20240109
  Serious: Yes (Other)
  Sender: FDA-Public Use
  Company Number: GB-TEVA-2023-GB-2923034

PATIENT
  Age: 11 Year
  Sex: Male

DRUGS (2)
  1. METHYLPHENIDATE [Suspect]
     Active Substance: METHYLPHENIDATE
     Indication: Product used for unknown indication
     Dosage: XAGGITIN (METHYLPHENIDATE HYDROCHLORIDE)
     Route: 065
  2. METHYLPHENIDATE [Suspect]
     Active Substance: METHYLPHENIDATE
     Dosage: DOSE INCREASED
     Route: 065

REACTIONS (5)
  - Suicidal behaviour [Unknown]
  - Aggression [Unknown]
  - Emotional disorder [Unknown]
  - Drug ineffective [Unknown]
  - Product substitution issue [Unknown]
